FAERS Safety Report 5925836-7 (Version None)
Quarter: 2008Q4

REPORT INFORMATION
  Report Type: 
  Country: None (occurrence: None)
  Receive Date: 20081021
  Receipt Date: 20081006
  Transmission Date: 20090506
  Serious: Yes (Hospitalization, Other)
  Sender: FDA-Public Use
  Company Number: GB-AVENTIS-200819911GDDC

PATIENT

DRUGS (1)
  1. GLYBURIDE [Suspect]

REACTIONS (4)
  - HYPOGLYCAEMIA NEONATAL [None]
  - JAUNDICE NEONATAL [None]
  - MACROSOMIA [None]
  - NEONATAL RESPIRATORY DISTRESS SYNDROME [None]
